FAERS Safety Report 19345356 (Version 1)
Quarter: 2021Q2

REPORT INFORMATION
  Report Type: Spontaneous
  Country: US (occurrence: US)
  Receive Date: 20210531
  Receipt Date: 20210531
  Transmission Date: 20210717
  Serious: No
  Sender: FDA-Public Use
  Company Number: US-JNJFOC-20210544341

PATIENT
  Age: 71 Year
  Sex: Female

DRUGS (1)
  1. WOMENS ROGAINE UNSCENTED [Suspect]
     Active Substance: MINOXIDIL
     Indication: ALOPECIA
     Dosage: AMOUNT RECOMMENDED.
     Route: 065
     Dates: start: 20210508

REACTIONS (2)
  - Burning sensation [Recovered/Resolved]
  - Application site hypersensitivity [Recovering/Resolving]

NARRATIVE: CASE EVENT DATE: 20210512
